FAERS Safety Report 6791071-6 (Version None)
Quarter: 2010Q2

REPORT INFORMATION
  Report Type: 
  Country: None (occurrence: None)
  Receive Date: 20100623
  Receipt Date: 20100623
  Transmission Date: 20101027
  Serious: No
  Sender: FDA-Public Use
  Company Number: None

PATIENT
  Age: 76 Year
  Sex: Female
  Weight: 79.3795 kg

DRUGS (2)
  1. FOSAMAX [Suspect]
     Indication: OSTEOPOROSIS
     Dosage: FOSSAMAX 70MG  WEEKLY PO
     Route: 048
     Dates: start: 20050101, end: 20080101
  2. ZOLINDRONIC ACID 5MG IV [Suspect]
     Dosage: ZOLINDRONIC ACID 5 MG YEARLY IV BOLUS
     Route: 040
     Dates: start: 20090101, end: 20100101

REACTIONS (1)
  - FEMUR FRACTURE [None]
